FAERS Safety Report 5197416-5 (Version None)
Quarter: 2006Q4

REPORT INFORMATION
  Report Type: 
  Country: None (occurrence: None)
  Receive Date: 20060928
  Receipt Date: 20060112
  Transmission Date: 20070319
  Serious: Yes (Other)
  Sender: FDA-Public Use
  Company Number: 06002RX

PATIENT
  Age: 46 Year
  Sex: Male
  Weight: 68.0396 kg

DRUGS (2)
  1. UROCIT-K [Suspect]
     Indication: NEPHROLITHIASIS
     Dosage: 2 TABLETS 3X DAILY    047
     Dates: start: 20050701
  2. NASALCHROM [Suspect]
     Indication: HYPERSENSITIVITY
     Dosage: 2 PUFFS 2X DIALY    054

REACTIONS (1)
  - RASH [None]
